FAERS Safety Report 9475878 (Version 1)
Quarter: 2013Q3

REPORT INFORMATION
  Report Type: Spontaneous
  Country: CO (occurrence: CO)
  Receive Date: 20130826
  Receipt Date: 20130826
  Transmission Date: 20140515
  Serious: Yes (Hospitalization, Other)
  Sender: FDA-Public Use
  Company Number: CO-MPIJNJ-2013JNJ000084

PATIENT
  Sex: 0

DRUGS (1)
  1. VELCADE [Suspect]
     Indication: PLASMA CELL MYELOMA
     Dosage: 2.5 MG, UNK
     Route: 065
     Dates: start: 20130521, end: 20130531

REACTIONS (4)
  - Contusion [Unknown]
  - Surgery [Unknown]
  - Asthenia [Unknown]
  - Psychiatric symptom [Unknown]
